FAERS Safety Report 19639960 (Version 2)
Quarter: 2021Q3

REPORT INFORMATION
  Report Type: Report from Study
  Country: US (occurrence: US)
  Receive Date: 20210730
  Receipt Date: 20210901
  Transmission Date: 20211014
  Serious: Yes (Hospitalization, Other)
  Sender: FDA-Public Use
  Company Number: US-SHIRE-US202022093

PATIENT
  Age: 66 Year
  Sex: Male

DRUGS (12)
  1. TEDUGLUTIDE [Suspect]
     Active Substance: TEDUGLUTIDE
     Indication: SHORT-BOWEL SYNDROME
     Dosage: 4.15 MILLIGRAM, QD
     Route: 058
     Dates: start: 20200601
  2. TEDUGLUTIDE [Suspect]
     Active Substance: TEDUGLUTIDE
     Dosage: 4.15 MILLIGRAM, QD
     Route: 058
     Dates: start: 20210622
  3. TEDUGLUTIDE [Suspect]
     Active Substance: TEDUGLUTIDE
     Dosage: 4.15 MILLIGRAM, QD
     Route: 058
     Dates: start: 20210622
  4. TEDUGLUTIDE [Suspect]
     Active Substance: TEDUGLUTIDE
     Dosage: 4.15 MILLIGRAM, QD
     Route: 058
     Dates: start: 20200527, end: 20210823
  5. TEDUGLUTIDE [Suspect]
     Active Substance: TEDUGLUTIDE
     Indication: SHORT-BOWEL SYNDROME
     Dosage: 4.15 MILLIGRAM, QD
     Route: 058
     Dates: start: 20200601
  6. TEDUGLUTIDE [Suspect]
     Active Substance: TEDUGLUTIDE
     Dosage: 4.15 MILLIGRAM, QD
     Route: 058
     Dates: start: 20200527, end: 20210823
  7. TEDUGLUTIDE [Suspect]
     Active Substance: TEDUGLUTIDE
     Dosage: 4.15 MILLIGRAM, QD
     Route: 058
     Dates: start: 20200527, end: 20210823
  8. TEDUGLUTIDE [Suspect]
     Active Substance: TEDUGLUTIDE
     Indication: SHORT-BOWEL SYNDROME
     Dosage: 4.15 MILLIGRAM, QD
     Route: 058
     Dates: start: 20200601
  9. TEDUGLUTIDE [Suspect]
     Active Substance: TEDUGLUTIDE
     Dosage: 4.15 MILLIGRAM, QD
     Route: 058
     Dates: start: 20210622
  10. TEDUGLUTIDE [Suspect]
     Active Substance: TEDUGLUTIDE
     Dosage: 4.15 MILLIGRAM, QD
     Route: 058
     Dates: start: 20200527, end: 20210823
  11. TEDUGLUTIDE [Suspect]
     Active Substance: TEDUGLUTIDE
     Indication: SHORT-BOWEL SYNDROME
     Dosage: 4.15 MILLIGRAM, QD
     Route: 058
     Dates: start: 20200601
  12. TEDUGLUTIDE [Suspect]
     Active Substance: TEDUGLUTIDE
     Dosage: 4.15 MILLIGRAM, QD
     Route: 058
     Dates: start: 20210622

REACTIONS (6)
  - Swelling [Unknown]
  - Nausea [Unknown]
  - Urinary tract disorder [Unknown]
  - Colectomy [Unknown]
  - Thrombosis [Unknown]
  - Vomiting [Unknown]

NARRATIVE: CASE EVENT DATE: 20200624
